FAERS Safety Report 7722779-3 (Version None)
Quarter: 2011Q3

REPORT INFORMATION
  Report Type: 
  Country: None (occurrence: None)
  Receive Date: 20110901
  Receipt Date: 20110824
  Transmission Date: 20111222
  Serious: Yes (Death, Hospitalization)
  Sender: FDA-Public Use
  Company Number: CA-BIOGENIDEC-2011BI025769

PATIENT
  Age: 46 Year
  Sex: Male

DRUGS (1)
  1. TYSABRI [Suspect]
     Indication: RELAPSING-REMITTING MULTIPLE SCLEROSIS
     Route: 042
     Dates: start: 20090901, end: 20091101

REACTIONS (6)
  - RESPIRATORY ARREST [None]
  - RESPIRATORY FAILURE [None]
  - RENAL DISORDER [None]
  - DEMYELINATION [None]
  - DRUG INEFFECTIVE [None]
  - PULMONARY EMBOLISM [None]
